FAERS Safety Report 7942685-9 (Version None)
Quarter: 2011Q4

REPORT INFORMATION
  Report Type: 
  Country: None (occurrence: None)
  Receive Date: 20111128
  Receipt Date: 20111123
  Transmission Date: 20120403
  Serious: Yes (Death)
  Sender: FDA-Public Use
  Company Number: NZ-B.I. PHARMACEUTICALS,INC./RIDGEFIELD-2011-AU-02250AU

PATIENT
  Age: 81 Year
  Sex: Male

DRUGS (2)
  1. ACE INHIBITOR [Suspect]
  2. PRADAXA [Suspect]

REACTIONS (2)
  - MELAENA [None]
  - CIRCULATORY COLLAPSE [None]
